FAERS Safety Report 19722230 (Version 1)
Quarter: 2021Q3

REPORT INFORMATION
  Report Type: Spontaneous
  Country: DE (occurrence: DE)
  Receive Date: 20210819
  Receipt Date: 20210819
  Transmission Date: 20211014
  Serious: Yes (Other)
  Sender: FDA-Public Use
  Company Number: DE-MYLANLABS-2021M1052073

PATIENT
  Sex: Female
  Weight: 55 kg

DRUGS (1)
  1. METOPROLOL. [Suspect]
     Active Substance: METOPROLOL
     Indication: PRODUCT USED FOR UNKNOWN INDICATION
     Dosage: 2 DOSAGE FORMS DAILY
     Route: 065
     Dates: start: 201902

REACTIONS (4)
  - Alopecia [Not Recovered/Not Resolved]
  - Dizziness [Not Recovered/Not Resolved]
  - Arrhythmia [Not Recovered/Not Resolved]
  - Anxiety [Not Recovered/Not Resolved]

NARRATIVE: CASE EVENT DATE: 201902
